FAERS Safety Report 15139039 (Version 2)
Quarter: 2019Q1

REPORT INFORMATION
  Report Type: Report from Study
  Country: CN (occurrence: CN)
  Receive Date: 20180713
  Receipt Date: 20190313
  Transmission Date: 20190417
  Serious: Yes (Other)
  Sender: FDA-Public Use
  Company Number: CN-ROCHE-2136520

PATIENT
  Age: 59 Year
  Sex: Male
  Weight: 62 kg

DRUGS (1)
  1. AVASTIN [Suspect]
     Active Substance: BEVACIZUMAB
     Indication: COLORECTAL CANCER METASTATIC
     Route: 041
     Dates: start: 20161110

REACTIONS (4)
  - Large intestinal obstruction [Unknown]
  - Platelet disorder [Unknown]
  - Platelet count decreased [Unknown]
  - Varicose vein [Unknown]

NARRATIVE: CASE EVENT DATE: 201903
